FAERS Safety Report 9752489 (Version 1)
Quarter: 2013Q4

REPORT INFORMATION
  Report Type: Spontaneous
  Country: US (occurrence: None)
  Receive Date: 20131212
  Receipt Date: 20131212
  Transmission Date: 20140711
  Serious: Yes (Other)
  Sender: FDA-Public Use
  Company Number: None

PATIENT
  Age: 51 Year
  Sex: Female
  Weight: 96.16 kg

DRUGS (6)
  1. PEPCID [Suspect]
     Indication: PREOPERATIVE CARE
     Dosage: 20 MG?1 PILL?1 TIME/BEFORE SURGERY ?MOUTH
     Route: 048
     Dates: start: 20131002, end: 20131002
  2. PEPCID [Suspect]
     Indication: CARPAL TUNNEL DECOMPRESSION
     Dosage: 20 MG?1 PILL?1 TIME/BEFORE SURGERY ?MOUTH
     Route: 048
     Dates: start: 20131002, end: 20131002
  3. LEXAPRO [Concomitant]
  4. TRAMADOL [Concomitant]
  5. CELEBRAX [Concomitant]
  6. ALPRAZOLAM [Concomitant]

REACTIONS (1)
  - Surgery [None]
